FAERS Safety Report 7804896-2 (Version None)
Quarter: 2011Q4

REPORT INFORMATION
  Report Type: 
  Country: None (occurrence: None)
  Receive Date: 20111010
  Receipt Date: 20110930
  Transmission Date: 20120403
  Serious: Yes (Hospitalization)
  Sender: FDA-Public Use
  Company Number: GB-MPIJNJ-2011-04652

PATIENT

DRUGS (6)
  1. VELCADE [Suspect]
     Indication: MULTIPLE MYELOMA
     Dosage: UNK
     Route: 042
     Dates: start: 20110809, end: 20110903
  2. ALLOPURINOL [Concomitant]
     Indication: ANTIFUNGAL PROPHYLAXIS
     Dosage: 300 MG, UNK
     Route: 048
     Dates: start: 20110809
  3. SIMVASTATIN [Concomitant]
     Indication: HYPERCHOLESTEROLAEMIA
     Dosage: 20 MG, UNK
     Route: 048
  4. DIGOXIN [Concomitant]
     Indication: CARDIAC FAILURE
     Dosage: 125 UG, UNK
     Route: 048
  5. BONEFOS [Concomitant]
     Indication: PROPHYLAXIS
     Dosage: 1600 MG, BID
     Route: 048
  6. VELCADE [Suspect]
     Dosage: 2 MG, 1/WEEK
     Route: 042
     Dates: start: 20110913

REACTIONS (3)
  - DUODENAL ULCER [None]
  - EROSIVE DUODENITIS [None]
  - GASTROINTESTINAL HAEMORRHAGE [None]
